FAERS Safety Report 4386164-7 (Version None)
Quarter: 2004Q2

REPORT INFORMATION
  Report Type: 
  Country: None (occurrence: None)
  Receive Date: 20040629
  Receipt Date: 20040621
  Transmission Date: 20050107
  Serious: Yes (Other)
  Sender: FDA-Public Use
  Company Number: PHRM2004FR02190

PATIENT
  Age: 59 Year
  Sex: Female

DRUGS (1)
  1. LAMISIL [Suspect]
     Indication: NAIL TINEA
     Dosage: 1 DF, QD
     Route: 048

REACTIONS (3)
  - PHOTOSENSITIVITY REACTION [None]
  - PROTEINURIA [None]
  - SYSTEMIC LUPUS ERYTHEMATOSUS RASH [None]
